FAERS Safety Report 15440926 (Version 1)
Quarter: 2018Q3

REPORT INFORMATION
  Report Type: Spontaneous
  Country: IT (occurrence: IT)
  Receive Date: 20180928
  Receipt Date: 20180928
  Transmission Date: 20181010
  Serious: Yes (Other)
  Sender: FDA-Public Use
  Company Number: IT-JNJFOC-20180932967

PATIENT
  Age: 78 Year
  Sex: Male

DRUGS (6)
  1. CARVASIN [Concomitant]
     Active Substance: ISOSORBIDE DINITRATE
     Route: 065
  2. MONOCINQUE [Concomitant]
     Active Substance: ISOSORBIDE MONONITRATE
     Route: 065
  3. XATRAL [Concomitant]
     Active Substance: ALFUZOSIN
     Route: 065
  4. SOTALEX [Concomitant]
     Active Substance: SOTALOL
     Route: 065
  5. XARELTO [Suspect]
     Active Substance: RIVAROXABAN
     Indication: ATRIAL FIBRILLATION
     Route: 048
  6. PANTORC [Concomitant]
     Active Substance: PANTOPRAZOLE SODIUM
     Route: 065

REACTIONS (1)
  - Leukopenia [Unknown]
